FAERS Safety Report 16625881 (Version 1)
Quarter: 2019Q3

REPORT INFORMATION
  Report Type: Spontaneous
  Country: IE (occurrence: IE)
  Receive Date: 20190724
  Receipt Date: 20190724
  Transmission Date: 20191004
  Serious: Yes (Other)
  Sender: FDA-Public Use
  Company Number: IE-MYLANLABS-2019M1069047

PATIENT
  Sex: Male

DRUGS (1)
  1. CLOZARIL [Suspect]
     Active Substance: CLOZAPINE
     Indication: SCHIZOPHRENIA
     Dosage: UNK
     Route: 048
     Dates: start: 20190619, end: 20190717

REACTIONS (9)
  - White blood cell count increased [Unknown]
  - Myocarditis [Unknown]
  - Pyrexia [Unknown]
  - Troponin increased [Unknown]
  - C-reactive protein increased [Unknown]
  - Tachycardia [Unknown]
  - Hypotension [Unknown]
  - Neutrophil count increased [Unknown]
  - Atrial fibrillation [Unknown]

NARRATIVE: CASE EVENT DATE: 2019
